FAERS Safety Report 24147467 (Version 3)
Quarter: 2024Q3

REPORT INFORMATION
  Report Type: Spontaneous
  Country: US (occurrence: US)
  Receive Date: 20240729
  Receipt Date: 20240829
  Transmission Date: 20241017
  Serious: No
  Sender: BIOMARIN
  Company Number: US-SA-SAC20240719000037

PATIENT

DRUGS (1)
  1. LARONIDASE [Suspect]
     Active Substance: LARONIDASE
     Indication: Mucopolysaccharidosis I
     Dosage: 8.7 (UNITS NOT PROVIDED), QW
     Route: 042
     Dates: start: 20240716

REACTIONS (5)
  - Back pain [Recovered/Resolved]
  - Energy increased [Recovering/Resolving]
  - Crying [Recovering/Resolving]
  - Condition aggravated [Recovering/Resolving]
  - Therapeutic response unexpected [Unknown]

NARRATIVE: CASE EVENT DATE: 20240101
